FAERS Safety Report 26216351 (Version 1)
Quarter: 2025Q4

REPORT INFORMATION
  Report Type: Spontaneous
  Country: CN (occurrence: CN)
  Receive Date: 20251231
  Receipt Date: 20251231
  Transmission Date: 20260117
  Serious: Yes (Other)
  Sender: ROCHE
  Company Number: CN-ROCHE-10000470143

PATIENT
  Age: 57 Year
  Sex: Female

DRUGS (2)
  1. ALECTINIB HYDROCHLORIDE [Suspect]
     Active Substance: ALECTINIB HYDROCHLORIDE
     Indication: Bronchial carcinoma
     Dosage: STRENGTH: 150 MG * 56 CAPSULES 4 SMALL BOXES
     Route: 048
     Dates: start: 20251203, end: 20251220
  2. ALECTINIB HYDROCHLORIDE [Suspect]
     Active Substance: ALECTINIB HYDROCHLORIDE
     Indication: Lung neoplasm malignant

REACTIONS (1)
  - Anaphylactoid reaction [Recovering/Resolving]

NARRATIVE: CASE EVENT DATE: 20251220
